FAERS Safety Report 5872741-0 (Version None)
Quarter: 2008Q3

REPORT INFORMATION
  Report Type: 
  Country: None (occurrence: None)
  Receive Date: 20080905
  Receipt Date: 20080826
  Transmission Date: 20090109
  Serious: Yes (Other)
  Sender: FDA-Public Use
  Company Number: US-PFIZER INC-2008058597

PATIENT
  Age: 70 Year
  Sex: Female

DRUGS (3)
  1. CELEBREX [Suspect]
     Indication: FIBROMYALGIA
  2. CELEBREX [Suspect]
     Indication: ARTHRITIS
  3. COUMADIN [Concomitant]

REACTIONS (1)
  - HEART RATE IRREGULAR [None]
